FAERS Safety Report 17295797 (Version 2)
Quarter: 2020Q1

REPORT INFORMATION
  Report Type: Report from Study
  Country: US (occurrence: US)
  Receive Date: 20200121
  Receipt Date: 20200218
  Transmission Date: 20200409
  Serious: Yes (Other)
  Sender: FDA-Public Use
  Company Number: US-DENDREON PHARMACEUTICAL LLC-2020DEN000017

PATIENT

DRUGS (6)
  1. PROVENGE [Suspect]
     Active Substance: SIPULEUCEL-T
     Dosage: DOSE #3
     Route: 042
     Dates: start: 20191021, end: 20191021
  2. IPILIMUMAB [Suspect]
     Active Substance: IPILIMUMAB
     Dosage: DOSE #2
     Dates: start: 20191203, end: 20191203
  3. PROVENGE [Suspect]
     Active Substance: SIPULEUCEL-T
     Indication: PROSTATE CANCER METASTATIC
     Dosage: DOSE #1
     Route: 042
     Dates: start: 20190923, end: 20190923
  4. PROVENGE [Suspect]
     Active Substance: SIPULEUCEL-T
     Dosage: DOSE #2
     Route: 042
     Dates: start: 20191007, end: 20191007
  5. IPILIMUMAB [Suspect]
     Active Substance: IPILIMUMAB
     Indication: PROSTATE CANCER METASTATIC
     Dosage: DOSE #1
     Dates: start: 20191112, end: 20191112
  6. IPILIMUMAB [Suspect]
     Active Substance: IPILIMUMAB
     Dosage: DOSE #3
     Dates: start: 20191223, end: 20191223

REACTIONS (2)
  - Diarrhoea [Recovered/Resolved]
  - Autoimmune colitis [Recovered/Resolved]

NARRATIVE: CASE EVENT DATE: 20200108
